FAERS Safety Report 10396195 (Version 1)
Quarter: 2014Q1

REPORT INFORMATION
  Report Type: Spontaneous
  Country: US (occurrence: None)
  Receive Date: 20130124
  Receipt Date: 20130124
  Transmission Date: 20141002
  Serious: Yes (Hospitalization)
  Sender: FDA-Public Use
  Company Number: 2012PROUSA00967

PATIENT
  Age: 56 Year
  Sex: Male
  Weight: 98 kg

DRUGS (19)
  1. PROVENGE ( SIPULEUCEL-T) SUSPENSION, 250 ML [Suspect]
     Indication: PROSTATE CANCER
     Dosage: 250 ML, SINGLE, INTRAVENOUS
     Route: 042
     Dates: start: 20111223, end: 20111223
  2. CELEBREX (CELECOXIB [Concomitant]
  3. MIRALAX (MACROGOL 3350) [Concomitant]
  4. OXYCONTIN (OXYCODONE HYDROCLORIDE) [Concomitant]
  5. OXYCODONE [Concomitant]
  6. SENNA (SENNA ALEXANDRINA) [Concomitant]
  7. PROCHLORPERAZINE MALEATE [Concomitant]
  8. GABAPENTIN [Concomitant]
  9. ZOMETA (ZOLEDRONIC ACID) [Concomitant]
  10. BUPROPION [Concomitant]
  11. LISINOPRIL [Concomitant]
  12. LACTULOSE [Concomitant]
  13. CALCIUM WITH VITAMIN D(CALCIUM CARBONATE,COLECACIFEROL) [Concomitant]
  14. MAGESIUM CITRATE [Concomitant]
  15. LEUPROLIDE ACETATE [Concomitant]
  16. MULTIVITAMIN (VITAMINS NOS) [Concomitant]
  17. DRONABINOL [Concomitant]
  18. DOCUSATE CALCIUM [Concomitant]
  19. VITAMIN E (TOCOPHEROL) [Concomitant]

REACTIONS (7)
  - Groin pain [None]
  - Rash [None]
  - Pain [None]
  - Swelling face [None]
  - Urinary tract infection [None]
  - Oedema peripheral [None]
  - Pain in extremity [None]
